FAERS Safety Report 9626144 (Version 2)
Quarter: 2013Q4

REPORT INFORMATION
  Report Type: Report from Study
  Country: RO (occurrence: RO)
  Receive Date: 20131016
  Receipt Date: 20131016
  Transmission Date: 20140711
  Serious: Yes (Other)
  Sender: FDA-Public Use
  Company Number: RO-ELI_LILLY_AND_COMPANY-RO201309004784

PATIENT
  Age: 40 Year
  Sex: Male

DRUGS (1)
  1. OLANZAPINE LONG-ACTING IM [Suspect]
     Dosage: 300 MG, EVERY 2 WEEKS

REACTIONS (4)
  - Coma [Unknown]
  - Blood pressure decreased [Unknown]
  - Somnolence [Unknown]
  - Malaise [Unknown]
